FAERS Safety Report 5750327-6 (Version None)
Quarter: 2008Q2

REPORT INFORMATION
  Report Type: 
  Country: None (occurrence: None)
  Receive Date: 20080527
  Receipt Date: 20080513
  Transmission Date: 20081010
  Serious: Yes (Hospitalization, Other)
  Sender: FDA-Public Use
  Company Number: PHNU2008DE01793

PATIENT
  Age: 57 Year
  Sex: Female

DRUGS (1)
  1. FEMARA [Suspect]
     Indication: BREAST CANCER
     Dosage: UNKNOWN
     Route: 048
     Dates: start: 20050101

REACTIONS (6)
  - CONDITION AGGRAVATED [None]
  - HOT FLUSH [None]
  - MENISCUS LESION [None]
  - MENISCUS OPERATION [None]
  - MUSCULOSKELETAL PAIN [None]
  - OSTEOARTHRITIS [None]
